FAERS Safety Report 15195302 (Version 3)
Quarter: 2018Q3

REPORT INFORMATION
  Report Type: Spontaneous
  Country: IL (occurrence: IL)
  Receive Date: 20180725
  Receipt Date: 20180817
  Transmission Date: 20181010
  Serious: Yes (Hospitalization, Other)
  Sender: FDA-Public Use
  Company Number: IL-ACTELION-A-CH2018-175192

PATIENT
  Age: 68 Year
  Sex: Male

DRUGS (8)
  1. UPTRAVI [Suspect]
     Active Substance: SELEXIPAG
     Dosage: 1200 MCG, BID
     Route: 048
     Dates: start: 20180814
  2. SILDENAFIL CITRATE. [Concomitant]
     Active Substance: SILDENAFIL CITRATE
  3. UPTRAVI [Suspect]
     Active Substance: SELEXIPAG
     Indication: INTERSTITIAL LUNG DISEASE
     Dosage: 800 MCG, BID
     Route: 048
  4. UPTRAVI [Suspect]
     Active Substance: SELEXIPAG
     Dosage: 200 MCG, BID
     Route: 048
     Dates: start: 20180621
  5. ELTROXIN [Concomitant]
     Active Substance: LEVOTHYROXINE
  6. UPTRAVI [Suspect]
     Active Substance: SELEXIPAG
     Dosage: 1000 MCG, BID
     Route: 048
     Dates: start: 20180802
  7. LOSEC [Concomitant]
     Active Substance: OMEPRAZOLE
  8. PREDNISONE. [Concomitant]
     Active Substance: PREDNISONE

REACTIONS (9)
  - Interstitial lung disease [Unknown]
  - Musculoskeletal chest pain [Unknown]
  - Dyspnoea [Recovered/Resolved]
  - Condition aggravated [Unknown]
  - Accident at home [Unknown]
  - Dyspnoea exertional [Not Recovered/Not Resolved]
  - Concomitant disease aggravated [Not Recovered/Not Resolved]
  - Rib fracture [Unknown]
  - Loss of consciousness [Recovered/Resolved]

NARRATIVE: CASE EVENT DATE: 20180716
